FAERS Safety Report 25163094 (Version 1)
Quarter: 2025Q2

REPORT INFORMATION
  Report Type: Spontaneous
  Country: CA (occurrence: CA)
  Receive Date: 20250404
  Receipt Date: 20250404
  Transmission Date: 20250716
  Serious: Yes (Death)
  Sender: NOVARTIS
  Company Number: CA-002147023-NVSC2025CA056445

PATIENT
  Age: 54 Year
  Sex: Female

DRUGS (1)
  1. PAZOPANIB [Suspect]
     Active Substance: PAZOPANIB
     Indication: Ovarian granulosa cell tumour
     Route: 065

REACTIONS (2)
  - Ovarian granulosa cell tumour [Fatal]
  - Malignant neoplasm progression [Fatal]
